FAERS Safety Report 7488584-0 (Version None)
Quarter: 2011Q2

REPORT INFORMATION
  Report Type: 
  Country: None (occurrence: None)
  Receive Date: 20110518
  Receipt Date: 20110411
  Transmission Date: 20111010
  Serious: Yes (Hospitalization, Other)
  Sender: FDA-Public Use
  Company Number: US-BAYER-201015558NA

PATIENT
  Age: 19 Year
  Sex: Female
  Weight: 86.168 kg

DRUGS (5)
  1. YAZ [Suspect]
     Indication: CONTRACEPTION
  2. DROSPIRENONE AND ETHINYL ESTRADIOL [Suspect]
     Indication: CONTRACEPTION
     Dosage: UNK
     Dates: start: 20080715, end: 20091004
  3. YASMIN [Suspect]
     Indication: CONTRACEPTION
     Dosage: UNK
     Dates: start: 20080207, end: 20080618
  4. YAZ [Suspect]
     Indication: MENSTRUAL CYCLE MANAGEMENT
     Dosage: UNK UNK, UNK
     Route: 048
     Dates: start: 20070123, end: 20080110
  5. YASMIN [Suspect]
     Indication: MENSTRUAL CYCLE MANAGEMENT
     Dosage: UNK
     Route: 048
     Dates: start: 20050110, end: 20061222

REACTIONS (12)
  - ABDOMINAL PAIN UPPER [None]
  - CHEST PAIN [None]
  - CHOLESTEROSIS [None]
  - NAUSEA [None]
  - GASTROOESOPHAGEAL REFLUX DISEASE [None]
  - DYSPEPSIA [None]
  - CHOLECYSTITIS CHRONIC [None]
  - VOMITING [None]
  - BACK PAIN [None]
  - GALLBLADDER DISORDER [None]
  - MENTAL DISORDER [None]
  - EMOTIONAL DISORDER [None]
